FAERS Safety Report 4283250-7 (Version None)
Quarter: 2004Q1

REPORT INFORMATION
  Report Type: 
  Country: None (occurrence: None)
  Receive Date: 20040129
  Receipt Date: 20040120
  Transmission Date: 20041129
  Serious: Yes (Death)
  Sender: FDA-Public Use
  Company Number: 2003SE05771

PATIENT
  Age: 5 Year
  Sex: Male
  Weight: 15 kg

DRUGS (2)
  1. MEROPENEM [Suspect]
     Indication: NEUTROPENIA
     Dosage: 600 MG TID IV
     Route: 042
     Dates: start: 20030919, end: 20030924
  2. MEROPENEM [Suspect]
     Indication: PYREXIA
     Dosage: 600 MG TID IV
     Route: 042
     Dates: start: 20030919, end: 20030924

REACTIONS (2)
  - MULTI-ORGAN FAILURE [None]
  - PSEUDOMONAL SEPSIS [None]
